FAERS Safety Report 21650373 (Version 3)
Quarter: 2023Q1

REPORT INFORMATION
  Report Type: Report from Study
  Country: US (occurrence: US)
  Receive Date: 20221128
  Receipt Date: 20230222
  Transmission Date: 20230418
  Serious: Yes (Hospitalization, Other)
  Sender: FDA-Public Use
  Company Number: US-002147023-NVSC2022US263222

PATIENT
  Sex: Female

DRUGS (1)
  1. ENTRESTO [Suspect]
     Active Substance: SACUBITRIL\VALSARTAN
     Indication: Product used for unknown indication
     Dosage: 1 DOSAGE FORM, BID
     Route: 048
     Dates: start: 2017

REACTIONS (10)
  - Chronic obstructive pulmonary disease [Unknown]
  - Dysphonia [Unknown]
  - Dyspnoea [Unknown]
  - Dementia Alzheimer^s type [Unknown]
  - Confusional state [Unknown]
  - Memory impairment [Unknown]
  - Pyrexia [Unknown]
  - Chills [Unknown]
  - Alopecia [Unknown]
  - Cough [Unknown]
